FAERS Safety Report 4654665-X (Version None)
Quarter: 2005Q2

REPORT INFORMATION
  Report Type: 
  Country: None (occurrence: None)
  Receive Date: 20050504
  Receipt Date: 20050504
  Transmission Date: 20051028
  Serious: Yes (Other)
  Sender: FDA-Public Use
  Company Number: None

PATIENT
  Age: 43 Year
  Sex: Male
  Weight: 83.4619 kg

DRUGS (2)
  1. CELEBREX [Suspect]
     Indication: BACK PAIN
     Dosage: BID ORAL
     Route: 048
     Dates: start: 20050429, end: 20050429
  2. FLEXERIL [Concomitant]

REACTIONS (4)
  - BLISTER [None]
  - FACE OEDEMA [None]
  - SKIN EXFOLIATION [None]
  - STOMATITIS [None]
